FAERS Safety Report 9814440 (Version 4)
Quarter: 2014Q1

REPORT INFORMATION
  Report Type: Report from Study
  Country: US (occurrence: US)
  Receive Date: 20140113
  Receipt Date: 20140213
  Transmission Date: 20141002
  Serious: No
  Sender: FDA-Public Use
  Company Number: PHEH2014US000968

PATIENT
  Sex: Male
  Weight: 87.98 kg

DRUGS (27)
  1. TASIGNA [Suspect]
     Indication: GASTRIC CANCER
     Dosage: 200 MG
     Route: 048
  2. CYMBALTA [Concomitant]
     Dosage: UNK UKN, UNK
  3. COREG [Concomitant]
     Dosage: UNK UKN, UNK
  4. AMLODIPINE BESYLATE [Concomitant]
     Dosage: UNK UKN, UNK
  5. NORVASC [Concomitant]
     Dosage: UNK UKN, UNK
  6. LYRICA [Concomitant]
     Dosage: UNK UKN, UNK
  7. ROBAXIN [Concomitant]
     Dosage: UNK UKN, UNK
  8. LANTUS [Concomitant]
     Dosage: 100 U/ML, L
  9. TERAZOSIN [Concomitant]
     Dosage: UNK UKN, UNK
  10. HYDRALAZINE [Concomitant]
     Dosage: UNK UKN, UNK
  11. NEXIUM//ESOMEPRAZOLE SODIUM [Concomitant]
     Dosage: UNK UKN, UNK
  12. OXYCODONE / ACETAMINOPHEN [Concomitant]
     Dosage: UNK UKN, UNK
  13. ZYRTEC-D [Concomitant]
     Dosage: UNK UKN, UNK
  14. MIRAPEX [Concomitant]
     Dosage: UNK UKN, UNK
  15. VIT. E [Concomitant]
     Dosage: UNK UKN, UNK
  16. KELP [Concomitant]
     Dosage: UNK UKN, UNK
  17. LECITHIN [Concomitant]
     Dosage: UNK UKN, UNK
  18. VITAMIN B6 [Concomitant]
     Dosage: UNK UKN, UNK
  19. BENADRYL /OLD FORM/ [Concomitant]
     Dosage: UNK UKN, UNK
  20. ASPIRIN [Concomitant]
     Dosage: UNK UKN, UNK
  21. PERCOCET [Concomitant]
     Dosage: UNK UKN, UNK
  22. LORTAB [Concomitant]
     Dosage: UNK UKN, UNK
  23. CARAFATE [Concomitant]
     Dosage: UNK UKN, UNK
  24. SELENIUM [Concomitant]
     Dosage: UNK UKN, UNK
  25. VIT B12 [Concomitant]
     Dosage: UNK UKN, UNK
  26. MAGNESIUM [Concomitant]
     Dosage: UNK UKN, UNK
  27. OCUVITE LUTEIN                     /02380501/ [Concomitant]
     Dosage: UNK UKN, UNK

REACTIONS (1)
  - Drug ineffective [Unknown]
